FAERS Safety Report 17717399 (Version 4)
Quarter: 2020Q3

REPORT INFORMATION
  Report Type: Spontaneous
  Country: US (occurrence: US)
  Receive Date: 20200428
  Receipt Date: 20200903
  Transmission Date: 20201102
  Serious: No
  Sender: FDA-Public Use
  Company Number: US-PFIZER INC-2020168866

PATIENT
  Age: 51 Year
  Sex: Female

DRUGS (1)
  1. XELJANZ XR [Suspect]
     Active Substance: TOFACITINIB CITRATE
     Dosage: 11 MG, UNK
     Dates: start: 202004

REACTIONS (7)
  - Depression [Unknown]
  - Menopause [Unknown]
  - Increased appetite [Unknown]
  - Weight increased [Unknown]
  - Product dose omission issue [Unknown]
  - Increased tendency to bruise [Unknown]
  - Chest discomfort [Unknown]
